FAERS Safety Report 4386616-X (Version None)
Quarter: 2004Q2

REPORT INFORMATION
  Report Type: 
  Country: None (occurrence: None)
  Receive Date: 20040629
  Receipt Date: 20040617
  Transmission Date: 20050107
  Serious: Yes (Disabling, Other)
  Sender: FDA-Public Use
  Company Number: GB-GLAXOSMITHKLINE-B0336128A

PATIENT
  Age: 40 Year
  Sex: Female

DRUGS (6)
  1. SUXAMETHONIUM [Suspect]
     Indication: GENERAL ANAESTHESIA
     Dosage: 100MG SINGLE DOSE
     Route: 042
     Dates: start: 20040205, end: 20040205
  2. THIOPENTONE [Concomitant]
     Route: 065
  3. FENTANYL [Concomitant]
     Route: 065
  4. ONDANSETRON [Concomitant]
     Route: 065
  5. MORPHINE [Concomitant]
     Route: 065
  6. ROCURONIUM BROMIDE [Concomitant]
     Route: 065

REACTIONS (5)
  - ANAPHYLACTIC REACTION [None]
  - BRONCHOSPASM [None]
  - DRUG LEVEL INCREASED [None]
  - HYPERSENSITIVITY [None]
  - HYPOTENSION [None]
